FAERS Safety Report 14628478 (Version 8)
Quarter: 2018Q2

REPORT INFORMATION
  Report Type: Report from Study
  Country: US (occurrence: US)
  Receive Date: 20180312
  Receipt Date: 20180611
  Transmission Date: 20180711
  Serious: Yes (Hospitalization)
  Sender: FDA-Public Use
  Company Number: PHHO2018US003324

PATIENT

DRUGS (27)
  1. HYDROMORPHONE [Concomitant]
     Active Substance: HYDROMORPHONE
     Indication: PAIN
     Dosage: 1 MG, QD
     Route: 048
     Dates: start: 20180129
  2. FUROSEMIDE. [Concomitant]
     Active Substance: FUROSEMIDE
     Indication: OEDEMA
     Dosage: 40 MG ONCE
     Route: 042
     Dates: start: 20180122
  3. SUCRALFATE. [Concomitant]
     Active Substance: SUCRALFATE
     Indication: GASTROINTESTINAL PAIN
     Dosage: 1 G, QID
     Route: 048
     Dates: start: 20171228
  4. FAT EMULSION NOS [Concomitant]
     Active Substance: EGG PHOSPHOLIPIDS\SAFFLOWER OIL\SOYBEAN OIL
     Indication: NUTRITIONAL SUPPLEMENTATION
     Dosage: 20 %, QD
     Route: 042
     Dates: start: 20171228
  5. VALGANCICLOVIR. [Concomitant]
     Active Substance: VALGANCICLOVIR
     Indication: CYTOMEGALOVIRUS INFECTION
     Dosage: 900 MG, BID
     Route: 048
     Dates: start: 20180207, end: 20180312
  6. PREDNISONE. [Suspect]
     Active Substance: PREDNISONE
     Dosage: 20 MG, QD (QAD)
     Route: 048
     Dates: start: 20180302
  7. PREDNISONE. [Suspect]
     Active Substance: PREDNISONE
     Dosage: 10 MG, QD (QAD)
     Route: 048
     Dates: start: 20180306
  8. PANTOPRAZOLE [Concomitant]
     Active Substance: PANTOPRAZOLE
     Indication: GASTROINTESTINAL PAIN
     Dosage: 40 MG, BID
     Route: 065
     Dates: start: 20180129
  9. METOPROLOL. [Concomitant]
     Active Substance: METOPROLOL
     Indication: ATRIAL FIBRILLATION
     Dosage: 12.5 MG, BID
     Route: 048
     Dates: start: 20180125
  10. TACROLIMUS. [Suspect]
     Active Substance: TACROLIMUS
     Indication: GRAFT VERSUS HOST DISEASE
     Dosage: 5000 UG, UNK
     Route: 042
     Dates: start: 20180104, end: 20180115
  11. TACROLIMUS. [Suspect]
     Active Substance: TACROLIMUS
     Dosage: 2.5 MG, 1.5 MG IN AM, 1 MG IN PM
     Route: 048
     Dates: start: 20180301, end: 20180312
  12. METHYLPREDNISOLONE. [Suspect]
     Active Substance: METHYLPREDNISOLONE
     Indication: GRAFT VERSUS HOST DISEASE
     Dosage: 31 MG, TID
     Route: 042
     Dates: start: 20171220
  13. METHYLPREDNISOLONE. [Suspect]
     Active Substance: METHYLPREDNISOLONE
     Dosage: 75 MG, QD
     Route: 042
     Dates: start: 20180104
  14. URSODIOL. [Concomitant]
     Active Substance: URSODIOL
     Indication: PROPHYLAXIS
     Dosage: 300 MG, TID
     Route: 048
     Dates: start: 20171227
  15. ONDANSETRON [Concomitant]
     Active Substance: ONDANSETRON
     Indication: NAUSEA
     Dosage: 4 MG, TID
     Route: 048
     Dates: start: 20180129
  16. ESCITALOPRAM OXALATE. [Concomitant]
     Active Substance: ESCITALOPRAM OXALATE
     Indication: DEPRESSION
     Dosage: 20 MG, QD
     Route: 048
     Dates: start: 20180219
  17. TACROLIMUS. [Suspect]
     Active Substance: TACROLIMUS
     Dosage: 1.5 MG, BID
     Route: 048
     Dates: start: 20180312
  18. LACTOBACILLUS RHAMNOSUS [Concomitant]
     Active Substance: LACTOBACILLUS RHAMNOSUS
     Indication: MUCOSAL EROSION
     Dosage: 1 CAPSULE BID
     Route: 048
     Dates: start: 20180110
  19. PENTAMIDINE [Concomitant]
     Active Substance: PENTAMIDINE
     Indication: INFECTION PROPHYLAXIS
     Dosage: 300 MG, Q4W
     Route: 055
     Dates: start: 20180103
  20. PREDNISONE. [Suspect]
     Active Substance: PREDNISONE
     Dosage: 5 MG, QD (QAD)
     Route: 048
     Dates: start: 20180310
  21. PREDNISONE. [Suspect]
     Active Substance: PREDNISONE
     Indication: GRAFT VERSUS HOST DISEASE
     Dosage: 55 MG, QD
     Route: 048
     Dates: start: 20180126, end: 20180225
  22. TACROLIMUS. [Suspect]
     Active Substance: TACROLIMUS
     Dosage: 1.5 MG, BID
     Route: 048
     Dates: start: 20180120, end: 20180301
  23. METHYLPREDNISOLONE. [Suspect]
     Active Substance: METHYLPREDNISOLONE
     Dosage: 56.25 MG, QD
     Route: 042
     Dates: start: 20180119, end: 20180125
  24. CEFPODOXIME PROXETIL. [Concomitant]
     Active Substance: CEFPODOXIME PROXETIL
     Indication: INFECTION PROPHYLAXIS
     Dosage: 200 MG, BID
     Route: 048
     Dates: start: 20180215
  25. INC424A [Suspect]
     Active Substance: RUXOLITINIB
     Indication: GRAFT VERSUS HOST DISEASE
     Dosage: 10 MG, BID
     Route: 048
     Dates: start: 20171228
  26. METHYLPREDNISOLONE. [Suspect]
     Active Substance: METHYLPREDNISOLONE
     Dosage: 93.75 MG, QD
     Route: 042
     Dates: start: 20171228
  27. MICAFUNGIN [Concomitant]
     Active Substance: MICAFUNGIN
     Indication: INFECTION PROPHYLAXIS
     Dosage: 100 MG, QD
     Route: 042
     Dates: start: 20171219, end: 20180226

REACTIONS (2)
  - Encephalopathy [Recovered/Resolved]
  - Enterococcal infection [Recovered/Resolved]

NARRATIVE: CASE EVENT DATE: 20180225
